FAERS Safety Report 14938037 (Version 1)
Quarter: 2018Q2

REPORT INFORMATION
  Report Type: Spontaneous
  Country: US (occurrence: US)
  Receive Date: 20180525
  Receipt Date: 20180525
  Transmission Date: 20180711
  Serious: No
  Sender: FDA-Public Use
  Company Number: US-JNJFOC-20180507174

PATIENT
  Age: 80 Year
  Sex: Female
  Weight: 77.11 kg

DRUGS (4)
  1. MENS ROGAINE EXTRA STRENGTH [Suspect]
     Active Substance: MINOXIDIL
     Indication: ALOPECIA
     Dosage: 3 TIMES PER DAY TOTAL. 1-2 TIMES EACH PRODUCT
     Route: 061
  2. WOMENS ROGAINE UNSCENTED [Suspect]
     Active Substance: MINOXIDIL
     Route: 061
  3. WOMENS ROGAINE UNSCENTED [Suspect]
     Active Substance: MINOXIDIL
     Indication: ALOPECIA
     Dosage: 3 TIMES PER DAY TOTAL. 1-2 TIMES EACH PRODUCT
     Route: 061
  4. MENS ROGAINE EXTRA STRENGTH [Suspect]
     Active Substance: MINOXIDIL
     Route: 061

REACTIONS (4)
  - Product use issue [Unknown]
  - Off label use [Unknown]
  - Overdose [Unknown]
  - Inappropriate schedule of drug administration [Unknown]
